FAERS Safety Report 21578160 (Version 1)
Quarter: 2022Q4

REPORT INFORMATION
  Report Type: Spontaneous
  Country: HR (occurrence: HR)
  Receive Date: 20221110
  Receipt Date: 20221110
  Transmission Date: 20230112
  Serious: Yes (Other)
  Sender: FDA-Public Use
  Company Number: HR-EMA-DD-20220525-6644853-132935

PATIENT
  Age: 63 Year
  Sex: Female

DRUGS (7)
  1. TACROLIMUS [Interacting]
     Active Substance: TACROLIMUS
     Indication: Immunosuppression
     Dosage: UNK
     Dates: start: 200101, end: 202104
  2. REMDESIVIR [Interacting]
     Active Substance: REMDESIVIR
     Indication: COVID-19 pneumonia
     Dosage: UNK
     Dates: start: 202104, end: 20210503
  3. ATORVASTATIN [Interacting]
     Active Substance: ATORVASTATIN
     Indication: Myocardial infarction
     Dosage: 80 MILLIGRAM, QD
     Dates: start: 201504, end: 20210531
  4. EZETIMIBE [Interacting]
     Active Substance: EZETIMIBE
     Indication: Myocardial infarction
     Dosage: 10 MILLIGRAM, QD
     Dates: start: 201504, end: 20210513
  5. MYCOPHENOLATE MOFETIL [Concomitant]
     Active Substance: MYCOPHENOLATE MOFETIL
     Indication: Immunosuppression
     Dosage: UNK
     Dates: start: 200101, end: 202104
  6. CEFTRIAXONE [Concomitant]
     Active Substance: CEFTRIAXONE
     Indication: COVID-19 pneumonia
     Dosage: UNK
     Dates: start: 202104
  7. DEXAMETHASONE [Concomitant]
     Active Substance: DEXAMETHASONE
     Indication: COVID-19 pneumonia
     Dosage: UNK
     Dates: start: 202104

REACTIONS (3)
  - Myopathy toxic [Recovered/Resolved]
  - Drug interaction [Recovered/Resolved]
  - Liver injury [Recovered/Resolved]

NARRATIVE: CASE EVENT DATE: 20210101
